FAERS Safety Report 25608108 (Version 1)
Quarter: 2025Q3

REPORT INFORMATION
  Report Type: Spontaneous
  Country: US (occurrence: US)
  Receive Date: 20250725
  Receipt Date: 20250725
  Transmission Date: 20251021
  Serious: No
  Sender: INSUD PHARMA
  Company Number: US-INSUD PHARMA-2507US05806

PATIENT

DRUGS (2)
  1. SLYND [Suspect]
     Active Substance: DROSPIRENONE
     Indication: Polycystic ovarian syndrome
     Route: 048
     Dates: start: 2024
  2. SLYND [Suspect]
     Active Substance: DROSPIRENONE
     Indication: Menstrual disorder

REACTIONS (4)
  - Heavy menstrual bleeding [Not Recovered/Not Resolved]
  - Product use in unapproved indication [Unknown]
  - Intentional dose omission [Unknown]
  - Product dose omission issue [Unknown]

NARRATIVE: CASE EVENT DATE: 20240101
